FAERS Safety Report 4663186-X (Version None)
Quarter: 2005Q2

REPORT INFORMATION
  Report Type: 
  Country: None (occurrence: None)
  Receive Date: 20050517
  Receipt Date: 20050509
  Transmission Date: 20051028
  Serious: Yes (Other)
  Sender: FDA-Public Use
  Company Number: US-JNJFOC-20050502309

PATIENT
  Sex: Male
  Weight: 141.98 kg

DRUGS (4)
  1. REMICADE [Suspect]
     Indication: RHEUMATOID ARTHRITIS
     Route: 042
  2. MOBIC [Concomitant]
  3. DN100 [Concomitant]
  4. DN100 [Concomitant]

REACTIONS (1)
  - LYMPHOCYTIC LEUKAEMIA [None]
